FAERS Safety Report 20947674 (Version 1)
Quarter: 2022Q2

REPORT INFORMATION
  Report Type: Report from Study
  Country: IT (occurrence: IT)
  Receive Date: 20220611
  Receipt Date: 20220611
  Transmission Date: 20220720
  Serious: Yes (Hospitalization)
  Sender: FDA-Public Use
  Company Number: None

PATIENT
  Age: 69 Year
  Sex: Female

DRUGS (1)
  1. CISPLATIN [Suspect]
     Active Substance: CISPLATIN
     Indication: Vulval cancer
     Dosage: THERAPY DURATION : 42  DAYS
     Route: 065
     Dates: start: 20220329, end: 20220510

REACTIONS (5)
  - Anaemia [Unknown]
  - Vomiting [Unknown]
  - Abdominal pain upper [Unknown]
  - Hypocalcaemia [Unknown]
  - Diarrhoea [Unknown]

NARRATIVE: CASE EVENT DATE: 20220513
